FAERS Safety Report 21892448 (Version 3)
Quarter: 2023Q1

REPORT INFORMATION
  Report Type: Spontaneous
  Country: CA (occurrence: CA)
  Receive Date: 20230120
  Receipt Date: 20230210
  Transmission Date: 20230417
  Serious: Yes (Hospitalization, Other)
  Sender: FDA-Public Use
  Company Number: CA-PFIZER INC-202300016232

PATIENT
  Age: 89 Year
  Sex: Female

DRUGS (1)
  1. VYNDAMAX [Suspect]
     Active Substance: TAFAMIDIS
     Indication: Cardiac amyloidosis
     Dosage: 61 MG, 1X/DAY
     Route: 048
     Dates: start: 20210501

REACTIONS (20)
  - Fall [Recovering/Resolving]
  - Gait disturbance [Recovering/Resolving]
  - Escherichia urinary tract infection [Unknown]
  - Delirium [Unknown]
  - Faecaloma [Unknown]
  - Tricuspid valve incompetence [Unknown]
  - Pericardial effusion [Unknown]
  - Memory impairment [Unknown]
  - Urine odour abnormal [Unknown]
  - Change of bowel habit [Unknown]
  - Dilatation atrial [Unknown]
  - Flatulence [Unknown]
  - Osteoarthritis [Unknown]
  - Bladder dilatation [Unknown]
  - Bladder diverticulum [Unknown]
  - Haemoglobin decreased [Unknown]
  - Haematocrit decreased [Unknown]
  - Blood magnesium decreased [Unknown]
  - Prothrombin level increased [Unknown]
  - International normalised ratio increased [Unknown]

NARRATIVE: CASE EVENT DATE: 20230101
